FAERS Safety Report 5622931-7 (Version None)
Quarter: 2008Q1

REPORT INFORMATION
  Report Type: 
  Country: None (occurrence: None)
  Receive Date: 20080206
  Receipt Date: 20080110
  Transmission Date: 20080703
  Serious: Yes (Death, Hospitalization, Other)
  Sender: FDA-Public Use
  Company Number: 062-21880-08010601

PATIENT
  Age: 62 Year
  Sex: Female
  Weight: 46 kg

DRUGS (12)
  1. REVLIMID [Suspect]
     Indication: CHRONIC LYMPHOCYTIC LEUKAEMIA
     Dosage: 25MG, DAILY 21/28, ORAL;  15 MG, 0-1-0-0, ORAL
     Route: 048
     Dates: start: 20071001, end: 20071201
  2. REVLIMID [Suspect]
     Indication: CHRONIC LYMPHOCYTIC LEUKAEMIA
     Dosage: 25MG, DAILY 21/28, ORAL;  15 MG, 0-1-0-0, ORAL
     Route: 048
     Dates: start: 20071220, end: 20080101
  3. DEXAMETHASONE TAB [Concomitant]
  4. BACTRIM DS [Concomitant]
  5. PANTOPRAZOLE SODIUM [Concomitant]
  6. ALLOPURINOL [Concomitant]
  7. VFEND [Concomitant]
  8. EUGALAC (LACTULOSE) [Concomitant]
  9. AVELOX [Concomitant]
  10. ACYCLOVIR [Concomitant]
  11. PREDNISOLONE [Concomitant]
  12. ENOXAPARIN SODIUM [Concomitant]

REACTIONS (17)
  - ATRIAL FIBRILLATION [None]
  - CENTRAL LINE INFECTION [None]
  - DIARRHOEA [None]
  - GENERAL PHYSICAL HEALTH DETERIORATION [None]
  - HAEMATOCRIT DECREASED [None]
  - HAEMOGLOBIN DECREASED [None]
  - HAEMORRHAGE [None]
  - HYPOTENSION [None]
  - IDIOPATHIC THROMBOCYTOPENIC PURPURA [None]
  - LEUKOPENIA [None]
  - NEUTROPENIA [None]
  - PULMONARY HAEMORRHAGE [None]
  - RENAL FAILURE ACUTE [None]
  - RESPIRATORY FAILURE [None]
  - SEPSIS [None]
  - STAPHYLOCOCCAL INFECTION [None]
  - TACHYARRHYTHMIA [None]
